FAERS Safety Report 8381060-2 (Version None)
Quarter: 2012Q2

REPORT INFORMATION
  Report Type: 
  Country: None (occurrence: None)
  Receive Date: 20120523
  Receipt Date: 20120518
  Transmission Date: 20120825
  Serious: Yes (Other)
  Sender: FDA-Public Use
  Company Number: PT-PFIZER INC-2012113187

PATIENT
  Age: 61 Year
  Sex: Female

DRUGS (5)
  1. XALATAN [Suspect]
     Indication: INTRAOCULAR PRESSURE INCREASED
     Dosage: 1 GTT, 1X/DAY
     Route: 031
     Dates: start: 20110501, end: 20120503
  2. PILOCARPINE [Concomitant]
     Dosage: UNK
  3. COSOPT [Concomitant]
     Dosage: UNK
  4. ALPHAGAN [Concomitant]
     Dosage: UNK
  5. HYABAK [Concomitant]
     Dosage: UNK

REACTIONS (2)
  - INTRAOCULAR PRESSURE INCREASED [None]
  - EXPIRED DRUG ADMINISTERED [None]
